FAERS Safety Report 20719385 (Version 1)
Quarter: 2022Q2

REPORT INFORMATION
  Report Type: Spontaneous
  Country: KR (occurrence: KR)
  Receive Date: 20220418
  Receipt Date: 20220418
  Transmission Date: 20220721
  Serious: Yes (Hospitalization, Other)
  Sender: FDA-Public Use
  Company Number: KR-SA-2022SA125108

PATIENT
  Age: 13 Year
  Sex: Female
  Weight: 61 kg

DRUGS (35)
  1. PLAVIX [Suspect]
     Active Substance: CLOPIDOGREL BISULFATE
     Indication: Coronary artery disease
     Dosage: 75 MG, QD
     Route: 048
     Dates: start: 20190626
  2. ASPIRIN [Suspect]
     Active Substance: ASPIRIN
  3. ENALAPRIL [Suspect]
     Active Substance: ENALAPRIL
     Indication: Left ventricular dysfunction
     Dosage: UNK
     Route: 048
     Dates: start: 20190626, end: 20190709
  4. ENALAPRIL [Suspect]
     Active Substance: ENALAPRIL
     Dosage: UNK
     Route: 048
     Dates: start: 20190709, end: 20190723
  5. ENALAPRIL [Suspect]
     Active Substance: ENALAPRIL
     Dosage: UNK
     Route: 048
     Dates: start: 20190723, end: 20190820
  6. ENALAPRIL [Suspect]
     Active Substance: ENALAPRIL
     Dosage: UNK
     Route: 048
     Dates: start: 20190820, end: 20191210
  7. ENALAPRIL [Suspect]
     Active Substance: ENALAPRIL
     Dosage: 150 MG
     Route: 048
     Dates: start: 20191210, end: 20200207
  8. ENALAPRIL [Suspect]
     Active Substance: ENALAPRIL
     Dosage: 100 MG
     Route: 048
     Dates: start: 20200207, end: 20200623
  9. DICAMAX [Concomitant]
     Dosage: UNK
     Dates: start: 20190406
  10. HEPARIN [Concomitant]
     Active Substance: HEPARIN SODIUM
     Dosage: UNK
     Dates: start: 20200710, end: 20200713
  11. ADELAVIN NO.9 [Concomitant]
     Dosage: UNK
     Dates: start: 20200713, end: 20200713
  12. VITAMINS [Concomitant]
     Active Substance: VITAMINS
     Dosage: UNK
     Dates: start: 20200713, end: 20200713
  13. XYZAL [Concomitant]
     Active Substance: LEVOCETIRIZINE DIHYDROCHLORIDE
     Dosage: UNK
     Dates: start: 20200710
  14. DOXYCYCLINE [Concomitant]
     Active Substance: DOXYCYCLINE
     Dosage: UNK
     Dates: start: 20200629, end: 20200630
  15. GASOCOL [Concomitant]
     Dosage: UNK
     Dates: start: 20200626, end: 20200626
  16. ATROPINE [Concomitant]
     Active Substance: ATROPINE
     Dosage: UNK
     Dates: start: 20200626, end: 20200626
  17. CRESTOR [Concomitant]
     Active Substance: ROSUVASTATIN CALCIUM
     Dosage: UNK
     Dates: start: 20190301
  18. FREPAN [Concomitant]
     Dosage: UNK
     Dates: start: 20200626, end: 20200626
  19. ATROVENT [Concomitant]
     Active Substance: IPRATROPIUM BROMIDE
     Dosage: UNK
     Dates: start: 20200626, end: 20200629
  20. KETAMINE [Concomitant]
     Active Substance: KETAMINE
     Dosage: UNK
     Dates: start: 20200626, end: 20200626
  21. TRAMADOL HYDROCHLORIDE [Concomitant]
     Active Substance: TRAMADOL HYDROCHLORIDE
     Dosage: UNK
     Dates: start: 20200625, end: 20200625
  22. ENAPRIN [Concomitant]
     Dosage: UNK
     Dates: start: 20200625
  23. NEXIUM I.V. [Concomitant]
     Active Substance: ESOMEPRAZOLE SODIUM
     Dosage: UNK
     Dates: start: 20200623, end: 20200629
  24. TENORMIN [Concomitant]
     Active Substance: ATENOLOL
     Dosage: UNK
     Dates: start: 20200706, end: 20200706
  25. ALDACTONE [Concomitant]
     Active Substance: SPIRONOLACTONE
     Dosage: UNK
     Dates: start: 20200702
  26. ACETAMINOPHEN [Concomitant]
     Active Substance: ACETAMINOPHEN
     Dosage: UNK
     Dates: start: 20200626
  27. CEFTRIAXONE [Concomitant]
     Active Substance: CEFTRIAXONE
     Dosage: UNK
     Dates: start: 20200626, end: 20200710
  28. REBAMIPIDE [Concomitant]
     Active Substance: REBAMIPIDE
     Dosage: UNK
     Dates: start: 20200623
  29. NITROGLYCERIN [Concomitant]
     Active Substance: NITROGLYCERIN
     Dosage: UNK
     Dates: start: 20200609
  30. L-CARN [Concomitant]
     Dosage: UNK
     Dates: start: 20190214
  31. ELROTON [Concomitant]
     Dosage: UNK
     Dates: start: 20190222
  32. ASPIRIN [Concomitant]
     Active Substance: ASPIRIN
     Dosage: UNK
     Dates: start: 20190311
  33. METHOTREXATE [Concomitant]
     Active Substance: METHOTREXATE
     Dosage: UNK
     Dates: start: 20190228, end: 20200206
  34. CYCLOPHOSPHAMIDE [Concomitant]
     Active Substance: CYCLOPHOSPHAMIDE
     Dosage: UNK
     Dates: start: 20191116
  35. CELEBREX [Concomitant]
     Active Substance: CELECOXIB
     Dosage: UNK
     Dates: start: 20191123

REACTIONS (3)
  - Renal artery stenosis [Recovered/Resolved]
  - Gastrooesophageal reflux disease [Unknown]
  - Renal artery stenosis [Recovered/Resolved]

NARRATIVE: CASE EVENT DATE: 20200206
